FAERS Safety Report 6015574-7 (Version None)
Quarter: 2008Q4

REPORT INFORMATION
  Report Type: 
  Country: None (occurrence: None)
  Receive Date: 20081219
  Receipt Date: 20081219
  Transmission Date: 20090506
  Serious: No
  Sender: FDA-Public Use
  Company Number: None

PATIENT
  Age: 62 Year
  Sex: Female
  Weight: 49.8957 kg

DRUGS (1)
  1. RECLAST [Suspect]
     Indication: OSTEOPOROTIC FRACTURE

REACTIONS (2)
  - DERMATITIS [None]
  - HERPES ZOSTER [None]
